FAERS Safety Report 4362165-X (Version None)
Quarter: 2004Q2

REPORT INFORMATION
  Report Type: 
  Country: None (occurrence: None)
  Receive Date: 20040517
  Receipt Date: 20040507
  Transmission Date: 20050107
  Serious: Yes (Hospitalization)
  Sender: FDA-Public Use
  Company Number: 2003UW09578

PATIENT
  Age: 48 Year
  Sex: Female

DRUGS (5)
  1. SEROQUEL [Suspect]
     Indication: SCHIZOPHRENIA
     Dosage: 2400 MG DAILY PO
     Route: 048
  2. SEROQUEL [Suspect]
     Indication: SCHIZOPHRENIA
     Dosage: 900 MG DAILY PO
     Route: 048
  3. SEROQUEL [Suspect]
     Indication: SCHIZOPHRENIA
     Dosage: 1800 MG DAILY PO
     Route: 048
  4. BENADRYL [Concomitant]
  5. LORAZEPAM [Concomitant]

REACTIONS (11)
  - AGITATION [None]
  - ANXIETY [None]
  - DELUSION [None]
  - DRY SKIN [None]
  - NERVOUSNESS [None]
  - OVERDOSE [None]
  - SELF-MEDICATION [None]
  - SKIN WARM [None]
  - TACHYCARDIA [None]
  - URINARY HESITATION [None]
  - URINARY RETENTION [None]
